FAERS Safety Report 8142526-3 (Version None)
Quarter: 2012Q1

REPORT INFORMATION
  Report Type: 
  Country: None (occurrence: None)
  Receive Date: 20120216
  Receipt Date: 20111117
  Transmission Date: 20120608
  Serious: No
  Sender: FDA-Public Use
  Company Number: US-ASTRAZENECA-2011SE70325

PATIENT
  Sex: Male

DRUGS (4)
  1. BRILINTA [Suspect]
     Route: 048
  2. EFFIENT [Concomitant]
  3. PLAVIX [Concomitant]
  4. ASPIRIN [Concomitant]

REACTIONS (2)
  - RASH [None]
  - URTICARIA [None]
